FAERS Safety Report 10866436 (Version 1)
Quarter: 2015Q1

REPORT INFORMATION
  Report Type: Report from Study
  Country: US (occurrence: US)
  Receive Date: 20150225
  Receipt Date: 20150225
  Transmission Date: 20150721
  Serious: Yes (Other)
  Sender: FDA-Public Use
  Company Number: US-AMGEN-USASL2014085999

PATIENT
  Age: 62 Year
  Sex: Female

DRUGS (2)
  1. GABAPENTIN. [Concomitant]
     Active Substance: GABAPENTIN
     Dosage: UNK
  2. ENBREL [Suspect]
     Active Substance: ETANERCEPT
     Indication: RHEUMATOID ARTHRITIS
     Dosage: 50 MG, QWK
     Route: 065
     Dates: start: 20140901

REACTIONS (8)
  - Mobility decreased [Recovered/Resolved]
  - Carpal tunnel syndrome [Recovered/Resolved]
  - Depressed mood [Not Recovered/Not Resolved]
  - Hyperhidrosis [Recovered/Resolved]
  - Joint arthroplasty [Recovered/Resolved]
  - Tremor [Recovered/Resolved]
  - Chondropathy [Recovered/Resolved]
  - Fatigue [Not Recovered/Not Resolved]

NARRATIVE: CASE EVENT DATE: 2014
